FAERS Safety Report 23734106 (Version 1)
Quarter: 2024Q2

REPORT INFORMATION
  Report Type: Spontaneous
  Country: BE (occurrence: BE)
  Receive Date: 20240412
  Receipt Date: 20240412
  Transmission Date: 20240716
  Serious: Yes (Other)
  Sender: FDA-Public Use
  Company Number: BE-PFIZER INC-202400075264

PATIENT
  Age: 65 Year
  Sex: Female

DRUGS (1)
  1. ETANERCEPT [Suspect]
     Active Substance: ETANERCEPT
     Indication: Spondylitis
     Dosage: 50 MG/WK
     Route: 065

REACTIONS (4)
  - Organising pneumonia [Unknown]
  - Condition aggravated [Unknown]
  - Pyoderma gangrenosum [Unknown]
  - Off label use [Unknown]
